FAERS Safety Report 15806506 (Version 1)
Quarter: 2019Q1

REPORT INFORMATION
  Report Type: Spontaneous
  Country: US (occurrence: US)
  Receive Date: 20190110
  Receipt Date: 20190110
  Transmission Date: 20190417
  Serious: Yes (Hospitalization)
  Sender: FDA-Public Use
  Company Number: None

PATIENT
  Age: 44 Year
  Sex: Male
  Weight: 110.25 kg

DRUGS (2)
  1. INVEGA [Suspect]
     Active Substance: PALIPERIDONE
  2. PROLIXIN [Suspect]
     Active Substance: FLUPHENAZINE HYDROCHLORIDE
     Indication: HEAD INJURY
     Route: 030
     Dates: start: 20020101

REACTIONS (3)
  - Head injury [None]
  - Dehydration [None]
  - Schizophrenia [None]

NARRATIVE: CASE EVENT DATE: 20190109
